FAERS Safety Report 26121295 (Version 1)
Quarter: 2025Q4

REPORT INFORMATION
  Report Type: Spontaneous
  Country: IN (occurrence: IN)
  Receive Date: 20251204
  Receipt Date: 20251204
  Transmission Date: 20260117
  Serious: Yes (Other)
  Sender: MYLAN
  Company Number: IN-MYLANLABS-2025M1103521

PATIENT
  Age: 17 Year
  Sex: Male

DRUGS (20)
  1. MYCOPHENOLATE MOFETIL [Suspect]
     Active Substance: MYCOPHENOLATE MOFETIL
     Indication: Systemic lupus erythematosus
     Dosage: 2 GRAM, QD, UP TO A DOSE OF 2?G/DAY
  2. MYCOPHENOLATE MOFETIL [Suspect]
     Active Substance: MYCOPHENOLATE MOFETIL
     Indication: Neuropsychological symptoms
     Dosage: 2 GRAM, QD, UP TO A DOSE OF 2?G/DAY
     Route: 065
  3. MYCOPHENOLATE MOFETIL [Suspect]
     Active Substance: MYCOPHENOLATE MOFETIL
     Dosage: 2 GRAM, QD, UP TO A DOSE OF 2?G/DAY
     Route: 065
  4. MYCOPHENOLATE MOFETIL [Suspect]
     Active Substance: MYCOPHENOLATE MOFETIL
     Dosage: 2 GRAM, QD, UP TO A DOSE OF 2?G/DAY
  5. METHYLPREDNISOLONE [Suspect]
     Active Substance: METHYLPREDNISOLONE
     Indication: Systemic lupus erythematosus
     Dosage: 1 GRAM, QD
  6. METHYLPREDNISOLONE [Suspect]
     Active Substance: METHYLPREDNISOLONE
     Indication: Neuropsychological symptoms
     Dosage: 1 GRAM, QD
     Route: 065
  7. METHYLPREDNISOLONE [Suspect]
     Active Substance: METHYLPREDNISOLONE
     Dosage: 1 GRAM, QD
     Route: 065
  8. METHYLPREDNISOLONE [Suspect]
     Active Substance: METHYLPREDNISOLONE
     Dosage: 1 GRAM, QD
  9. TETRABENAZINE [Suspect]
     Active Substance: TETRABENAZINE
     Indication: Systemic lupus erythematosus
     Dosage: 75 MILLIGRAM, QD
  10. TETRABENAZINE [Suspect]
     Active Substance: TETRABENAZINE
     Indication: Neuropsychological symptoms
     Dosage: 75 MILLIGRAM, QD
     Route: 065
  11. TETRABENAZINE [Suspect]
     Active Substance: TETRABENAZINE
     Dosage: 75 MILLIGRAM, QD
     Route: 065
  12. TETRABENAZINE [Suspect]
     Active Substance: TETRABENAZINE
     Dosage: 75 MILLIGRAM, QD
  13. RISPERIDONE [Suspect]
     Active Substance: RISPERIDONE
     Indication: Systemic lupus erythematosus
     Dosage: 2 MILLIGRAM, QD
  14. RISPERIDONE [Suspect]
     Active Substance: RISPERIDONE
     Indication: Neuropsychological symptoms
     Dosage: 2 MILLIGRAM, QD
     Route: 065
  15. RISPERIDONE [Suspect]
     Active Substance: RISPERIDONE
     Dosage: 2 MILLIGRAM, QD
     Route: 065
  16. RISPERIDONE [Suspect]
     Active Substance: RISPERIDONE
     Dosage: 2 MILLIGRAM, QD
  17. PREDNISONE [Suspect]
     Active Substance: PREDNISONE
     Indication: Systemic lupus erythematosus
     Dosage: 1 MILLIGRAM/KILOGRAM, QD
  18. PREDNISONE [Suspect]
     Active Substance: PREDNISONE
     Indication: Neuropsychological symptoms
     Dosage: 1 MILLIGRAM/KILOGRAM, QD
     Route: 065
  19. PREDNISONE [Suspect]
     Active Substance: PREDNISONE
     Dosage: 1 MILLIGRAM/KILOGRAM, QD
     Route: 065
  20. PREDNISONE [Suspect]
     Active Substance: PREDNISONE
     Dosage: 1 MILLIGRAM/KILOGRAM, QD

REACTIONS (2)
  - Therapy non-responder [Unknown]
  - Off label use [Unknown]
